FAERS Safety Report 10705028 (Version 1)
Quarter: 2015Q1

REPORT INFORMATION
  Report Type: Spontaneous
  Country: TW (occurrence: TW)
  Receive Date: 20150112
  Receipt Date: 20150112
  Transmission Date: 20150721
  Serious: Yes (Hospitalization)
  Sender: FDA-Public Use
  Company Number: TW-MYLANLABS-2015M1000337

PATIENT

DRUGS (1)
  1. SALBUTAMOL [Suspect]
     Active Substance: ALBUTEROL
     Dosage: 5 MG

REACTIONS (5)
  - Left ventricular hypertrophy [None]
  - Thyrotoxic periodic paralysis [Recovering/Resolving]
  - Blood potassium decreased [None]
  - Basedow^s disease [None]
  - Hyperkalaemia [None]
